FAERS Safety Report 7017009-4 (Version None)
Quarter: 2010Q3

REPORT INFORMATION
  Report Type: 
  Country: None (occurrence: None)
  Receive Date: 20100927
  Receipt Date: 20100923
  Transmission Date: 20110219
  Serious: No
  Sender: FDA-Public Use
  Company Number: US-PFIZER INC-2010095545

PATIENT
  Age: 45 Year
  Sex: Female

DRUGS (1)
  1. SYNAREL [Suspect]
     Indication: INFERTILITY
     Dosage: UNK (TWO TIMES A DAY)
     Route: 045
     Dates: start: 20100724

REACTIONS (4)
  - DRUG DOSE OMISSION [None]
  - FEELING ABNORMAL [None]
  - HEADACHE [None]
  - STRESS [None]
